FAERS Safety Report 18119410 (Version 1)
Quarter: 2020Q3

REPORT INFORMATION
  Report Type: Other
  Country: JP (occurrence: JP)
  Receive Date: 20200806
  Receipt Date: 20200806
  Transmission Date: 20201103
  Serious: Yes (Other)
  Sender: FDA-Public Use
  Company Number: JP-ALSI-202000275

PATIENT
  Age: 71 Year
  Sex: Male
  Weight: 65 kg

DRUGS (9)
  1. NITROUS OXIDE. [Suspect]
     Active Substance: NITROUS OXIDE
     Route: 055
     Dates: start: 20010330, end: 20010330
  2. VECURONIUM BROMIDE. [Suspect]
     Active Substance: VECURONIUM BROMIDE
     Route: 042
     Dates: start: 20010330, end: 20010330
  3. BUTORPHANOL TARTRATE. [Suspect]
     Active Substance: BUTORPHANOL TARTRATE
     Indication: PREMEDICATION
     Route: 030
     Dates: start: 20010330, end: 20010330
  4. SEVOFLURANE. [Suspect]
     Active Substance: SEVOFLURANE
     Route: 055
     Dates: start: 20010330, end: 20010330
  5. NEOSTIGMINE METHYLSULFATE. [Concomitant]
     Active Substance: NEOSTIGMINE METHYLSULFATE
     Route: 042
     Dates: start: 20010330, end: 20010330
  6. PROPOFOL. [Suspect]
     Active Substance: PROPOFOL
     Route: 042
     Dates: start: 20010330, end: 20010330
  7. ATROPINE SULFATE. [Concomitant]
     Active Substance: ATROPINE SULFATE
     Dates: start: 20010330, end: 20010330
  8. LEVALLORPHAN TARTRATE [Concomitant]
     Active Substance: LEVALLORPHAN TARTRATE
     Route: 042
     Dates: start: 20010330, end: 20010330
  9. HYDROXYZINE [Suspect]
     Active Substance: HYDROXYZINE HYDROCHLORIDE
     Route: 030
     Dates: start: 20010330, end: 20010330

REACTIONS (5)
  - Apnoea [Recovering/Resolving]
  - Hypoxic-ischaemic encephalopathy [Recovering/Resolving]
  - Respiratory disorder [Recovering/Resolving]
  - Multiple system atrophy [Unknown]
  - Respiratory depression [Recovered/Resolved]
